FAERS Safety Report 5591028-7 (Version None)
Quarter: 2008Q1

REPORT INFORMATION
  Report Type: 
  Country: None (occurrence: None)
  Receive Date: 20080115
  Receipt Date: 20080110
  Transmission Date: 20080703
  Serious: Yes (Life-Threatening, Hospitalization, Other)
  Sender: FDA-Public Use
  Company Number: PHHY2008JP00547

PATIENT
  Age: 2 Year
  Sex: Female

DRUGS (1)
  1. VOLTAREN [Suspect]
     Indication: INFLUENZA
     Dosage: 12.5 MG/DAY
     Route: 054
     Dates: start: 20080102, end: 20080103

REACTIONS (7)
  - BLOOD PRESSURE DECREASED [None]
  - CONVULSION [None]
  - DEPRESSED LEVEL OF CONSCIOUSNESS [None]
  - ELECTROENCEPHALOGRAM ABNORMAL [None]
  - ENCEPHALOPATHY [None]
  - HEPATIC FUNCTION ABNORMAL [None]
  - PUPILLARY REFLEX IMPAIRED [None]
